FAERS Safety Report 8301726-X (Version None)
Quarter: 2012Q2

REPORT INFORMATION
  Report Type: 
  Country: None (occurrence: None)
  Receive Date: 20120417
  Receipt Date: 20120405
  Transmission Date: 20120825
  Serious: Yes (Hospitalization)
  Sender: FDA-Public Use
  Company Number: IT-GDP-12413512

PATIENT
  Sex: Male

DRUGS (1)
  1. CALCITRIOL [Suspect]

REACTIONS (1)
  - HYPERCALCAEMIA [None]
